FAERS Safety Report 12724573 (Version 6)
Quarter: 2018Q3

REPORT INFORMATION
  Report Type: Report from Study
  Country: SE (occurrence: SE)
  Receive Date: 20160908
  Receipt Date: 20180809
  Transmission Date: 20181010
  Serious: Yes (Hospitalization)
  Sender: FDA-Public Use
  Company Number: SE-SA-2016SA149925

PATIENT
  Age: 57 Year
  Sex: Male

DRUGS (14)
  1. FOLINIC ACID [Suspect]
     Active Substance: LEUCOVORIN
     Dosage: 45 UNK
     Dates: start: 20160719, end: 20160719
  2. NOVOMIX [Concomitant]
     Active Substance: INSULIN ASPART
     Dosage: UNK UNK,QCY
     Route: 041
     Dates: start: 20160114
  3. AFLIBERCEPT [Suspect]
     Active Substance: AFLIBERCEPT
     Dosage: 500 MG,QCY
     Route: 041
     Dates: start: 20160719, end: 20160719
  4. LOPERAMIDE [Concomitant]
     Active Substance: LOPERAMIDE
     Dosage: UNK UNK,QCY
     Route: 041
     Dates: start: 20151001
  5. FLUOROURACIL 5 FU [Suspect]
     Active Substance: FLUOROURACIL
     Indication: COLORECTAL CANCER METASTATIC
     Dosage: 850 MG, QCY
     Route: 040
     Dates: start: 20150929, end: 20150929
  6. FLUOROURACIL 5 FU [Suspect]
     Active Substance: FLUOROURACIL
     Dosage: 750 UNK
     Route: 040
     Dates: start: 20160719, end: 20160719
  7. FOLINIC ACID [Suspect]
     Active Substance: LEUCOVORIN
     Indication: COLORECTAL CANCER METASTATIC
     Dosage: 45 MG, QCY
     Route: 041
     Dates: start: 20150929, end: 20150929
  8. METOCLOPRAMIDE. [Concomitant]
     Active Substance: METOCLOPRAMIDE
     Dosage: UNK UNK,QCY
     Route: 041
     Dates: start: 20150929
  9. FLUOROURACIL 5 FU [Suspect]
     Active Substance: FLUOROURACIL
     Dosage: 6150 MG, QCY
     Route: 041
     Dates: start: 20150929, end: 20150929
  10. FLUOROURACIL 5 FU [Suspect]
     Active Substance: FLUOROURACIL
     Dosage: 5550 UNK
     Route: 041
     Dates: start: 20160719, end: 20160719
  11. AFLIBERCEPT [Suspect]
     Active Substance: AFLIBERCEPT
     Indication: COLORECTAL CANCER METASTATIC
     Dosage: 520 MG,QCY
     Route: 041
     Dates: start: 20150929, end: 20150929
  12. IRINOTECAN [Suspect]
     Active Substance: IRINOTECAN
     Indication: COLORECTAL CANCER METASTATIC
     Dosage: 395 MG, QCY
     Route: 041
     Dates: start: 20150929, end: 20150929
  13. IRINOTECAN [Suspect]
     Active Substance: IRINOTECAN
     Dosage: 350 UNK
     Route: 041
     Dates: start: 20160719, end: 20160719
  14. OXAZEPAM. [Concomitant]
     Active Substance: OXAZEPAM
     Dosage: UNK UNK,UNK
     Route: 065
     Dates: start: 20150521

REACTIONS (4)
  - Influenza like illness [Recovered/Resolved]
  - Diarrhoea [Recovered/Resolved]
  - Anxiety [Not Recovered/Not Resolved]
  - Non-cardiac chest pain [Recovered/Resolved]

NARRATIVE: CASE EVENT DATE: 20160725
